FAERS Safety Report 19890407 (Version 1)
Quarter: 2021Q3

REPORT INFORMATION
  Report Type: Spontaneous
  Country: US (occurrence: US)
  Receive Date: 20210928
  Receipt Date: 20210928
  Transmission Date: 20211014
  Serious: No
  Sender: FDA-Public Use
  Company Number: US-TEVA-2021-US-1957493

PATIENT
  Sex: Female

DRUGS (3)
  1. AJOVY [Suspect]
     Active Substance: FREMANEZUMAB-VFRM
     Route: 065
  2. AJOVY [Suspect]
     Active Substance: FREMANEZUMAB-VFRM
  3. MODERNA COVID?19 VACCINE [Suspect]
     Active Substance: CX-024414
     Route: 065

REACTIONS (3)
  - Injection site urticaria [Recovering/Resolving]
  - Injection site pruritus [Recovering/Resolving]
  - Injection site erythema [Recovering/Resolving]
